FAERS Safety Report 22978068 (Version 4)
Quarter: 2023Q4

REPORT INFORMATION
  Report Type: Spontaneous
  Country: US (occurrence: US)
  Receive Date: 20230925
  Receipt Date: 20231219
  Transmission Date: 20240109
  Serious: No
  Sender: FDA-Public Use
  Company Number: US-PFIZER INC-202300298898

PATIENT
  Age: 76 Year
  Sex: Female
  Weight: 70.31 kg

DRUGS (3)
  1. TALZENNA [Suspect]
     Active Substance: TALAZOPARIB TOSYLATE
     Indication: Breast cancer
     Dosage: FOR ABOUT 5 OR 6 MONTHS
     Route: 048
     Dates: end: 2020
  2. TALZENNA [Suspect]
     Active Substance: TALAZOPARIB TOSYLATE
     Dosage: 3 CAPSULES BY MOUTH WITH OR WITHOUT FOOD EVERY DAY
     Route: 048
     Dates: start: 202302
  3. TALZENNA [Suspect]
     Active Substance: TALAZOPARIB TOSYLATE
     Dosage: TAKE 1 CAPSULE BY MOUTH DAILY. TAKE WITH OR WITHOUT FOOD. SWALLOW WHOLE; DO NOT OPEN CAPSULE
     Route: 048

REACTIONS (3)
  - Insomnia [Recovering/Resolving]
  - Hot flush [Recovering/Resolving]
  - Alopecia [Recovering/Resolving]

NARRATIVE: CASE EVENT DATE: 20230101
